FAERS Safety Report 19578424 (Version 1)
Quarter: 2021Q3

REPORT INFORMATION
  Report Type: Report from Study
  Country: RO (occurrence: RO)
  Receive Date: 20210720
  Receipt Date: 20210720
  Transmission Date: 20211014
  Serious: Yes (Other)
  Sender: FDA-Public Use
  Company Number: RO-CELLTRION INC.-2020RO019003

PATIENT

DRUGS (4)
  1. DOCETAXEL. [Suspect]
     Active Substance: DOCETAXEL
     Indication: HER2 POSITIVE BREAST CANCER
     Dosage: 100 MG/M2, EVERY 3 WEEKS
     Route: 042
     Dates: start: 20190514
  2. CYCLOPHOSPHAMIDE. [Suspect]
     Active Substance: CYCLOPHOSPHAMIDE
     Indication: HER2 POSITIVE BREAST CANCER
     Dosage: 980 MG, EVERY 3 WEEKS (RECENT DOSE ON 23/APR/2019)
     Route: 042
     Dates: start: 20190131
  3. EPIRUBICIN [Suspect]
     Active Substance: EPIRUBICIN
     Indication: HER2 POSITIVE BREAST CANCER
     Dosage: 145 MG, EVERY 3 WEEKS (RECENT DOSE ON 23/APR/2019)
     Route: 042
     Dates: start: 20190131
  4. TRASTUZUMAB (UNKNOWN) [Suspect]
     Active Substance: TRASTUZUMAB
     Indication: HER2 POSITIVE BREAST CANCER
     Dosage: 600 MG, EVERY 3 WEEKS
     Route: 042
     Dates: start: 20190605

REACTIONS (6)
  - Anaemia [Recovered/Resolved]
  - Anaemia [Recovered/Resolved]
  - Erythema [Recovered/Resolved]
  - Hyponatraemia [Recovered/Resolved]
  - Leukopenia [Recovered/Resolved]
  - Overdose [Unknown]

NARRATIVE: CASE EVENT DATE: 20190401
